FAERS Safety Report 4318192-1 (Version None)
Quarter: 2004Q1

REPORT INFORMATION
  Report Type: 
  Country: None (occurrence: None)
  Receive Date: 20040315
  Receipt Date: 20040304
  Transmission Date: 20041129
  Serious: Yes (Hospitalization)
  Sender: FDA-Public Use
  Company Number: US-JNJFOC-20040301113

PATIENT
  Age: 53 Year
  Sex: Female
  Weight: 91 kg

DRUGS (5)
  1. DOXIL [Suspect]
     Indication: OVARIAN CANCER
     Dosage: 20 MG/M2, 1 IN 4 DAY, INTRAVENOUS
     Route: 042
     Dates: start: 20040102, end: 20040213
  2. GEMZAR [Suspect]
     Indication: OVARIAN CANCER
     Dosage: 1500 MG/M2, 1 IN 14 DAY, INTRAVENOUS
     Route: 042
     Dates: start: 20040102, end: 20040213
  3. ZOFRAN [Concomitant]
  4. CIPRO [Concomitant]
  5. MORPHINE SULFATE [Concomitant]

REACTIONS (23)
  - ACUTE RESPIRATORY DISTRESS SYNDROME [None]
  - ASTHENIA [None]
  - BLOOD CALCIUM DECREASED [None]
  - BLOOD CHLORIDE DECREASED [None]
  - BLOOD SODIUM DECREASED [None]
  - BODY TEMPERATURE INCREASED [None]
  - DIAPHRAGMATIC DISORDER [None]
  - DYSPNOEA [None]
  - HAEMATOCRIT DECREASED [None]
  - HAEMOGLOBIN DECREASED [None]
  - LUNG CONSOLIDATION [None]
  - LUNG NEOPLASM [None]
  - MALIGNANT NEOPLASM PROGRESSION [None]
  - METASTASES TO LUNG [None]
  - OVARIAN CANCER [None]
  - PAIN [None]
  - PERICARDIAL EFFUSION [None]
  - PLATELET COUNT DECREASED [None]
  - PLEURAL EFFUSION [None]
  - PNEUMONIA [None]
  - PROTEIN TOTAL DECREASED [None]
  - PULMONARY OEDEMA [None]
  - TACHYCARDIA [None]
